FAERS Safety Report 24424472 (Version 1)
Quarter: 2024Q4

REPORT INFORMATION
  Report Type: Spontaneous
  Country: US (occurrence: US)
  Receive Date: 20241010
  Receipt Date: 20241010
  Transmission Date: 20250114
  Serious: No
  Sender: AMGEN
  Company Number: US-AMGEN-USASP2024195842

PATIENT
  Age: 15 Year
  Sex: Male

DRUGS (1)
  1. NEUPOGEN [Suspect]
     Active Substance: FILGRASTIM
     Indication: Autoimmune neutropenia
     Dosage: 480 MICROGRAM (0.2 ML OF 480 MCG)
     Route: 065

REACTIONS (6)
  - Feeling abnormal [Unknown]
  - Lower respiratory tract congestion [Unknown]
  - Product storage error [Unknown]
  - Circumstance or information capable of leading to medication error [Unknown]
  - Pyrexia [Recovered/Resolved]
  - Dyspnoea [Unknown]

NARRATIVE: CASE EVENT DATE: 20240101
